FAERS Safety Report 6187646-8 (Version None)
Quarter: 2009Q2

REPORT INFORMATION
  Report Type: 
  Country: None (occurrence: None)
  Receive Date: 20090511
  Receipt Date: 20090504
  Transmission Date: 20091009
  Serious: Yes (Hospitalization)
  Sender: FDA-Public Use
  Company Number: CIP09001070

PATIENT
  Sex: Female

DRUGS (2)
  1. ACTONEL [Suspect]
     Dosage: 35 MG ONCE WEEKLY, ORAL
     Route: 048
  2. ACTONEL [Suspect]
     Dosage: 5 MG ONCE DAILY, ORAL
     Route: 048

REACTIONS (3)
  - DENTAL CARIES [None]
  - POST PROCEDURAL SWELLING [None]
  - TOOTH DISORDER [None]
